FAERS Safety Report 8830921 (Version 2)
Quarter: 2013Q3

REPORT INFORMATION
  Report Type: Spontaneous
  Country: US (occurrence: US)
  Receive Date: 20121009
  Receipt Date: 20130924
  Transmission Date: 20140515
  Serious: No
  Sender: FDA-Public Use
  Company Number: US-009507513-2012SP036296

PATIENT
  Sex: Female
  Weight: 78.47 kg

DRUGS (3)
  1. IMPLANON [Suspect]
     Dosage: 1 DF, UNK
     Dates: start: 20110328
  2. ZOLOFT [Concomitant]
  3. LYSINE [Concomitant]

REACTIONS (2)
  - Hypomenorrhoea [Not Recovered/Not Resolved]
  - Metrorrhagia [Not Recovered/Not Resolved]
